FAERS Safety Report 13300529 (Version 2)
Quarter: 2017Q2

REPORT INFORMATION
  Report Type: Report from Study
  Country: None (occurrence: US)
  Receive Date: 20170307
  Receipt Date: 20170506
  Transmission Date: 20170830
  Serious: Yes (Hospitalization, Other)
  Sender: FDA-Public Use
  Company Number: US-ABBVIE-17K-163-1894999-00

PATIENT
  Age: 69 Year
  Sex: Female
  Weight: 95.34 kg

DRUGS (10)
  1. HUMIRA [Suspect]
     Active Substance: ADALIMUMAB
     Indication: RHEUMATOID ARTHRITIS
     Route: 058
     Dates: start: 201605, end: 20170223
  2. ACEBUTOLOL [Concomitant]
     Active Substance: ACEBUTOLOL
     Indication: VENTRICULAR EXTRASYSTOLES
  3. LIPITOR [Concomitant]
     Active Substance: ATORVASTATIN CALCIUM
     Indication: BLOOD CHOLESTEROL INCREASED
  4. ALDACTONE [Concomitant]
     Active Substance: SPIRONOLACTONE
     Indication: HYPERTENSION
  5. NORVASC [Concomitant]
     Active Substance: AMLODIPINE BESYLATE
     Indication: HYPERTENSION
  6. HUMIRA [Suspect]
     Active Substance: ADALIMUMAB
     Route: 058
     Dates: start: 20170406
  7. PREDNISONE. [Concomitant]
     Active Substance: PREDNISONE
     Indication: POLYMYALGIA RHEUMATICA
  8. PRILOSEC [Concomitant]
     Active Substance: OMEPRAZOLE MAGNESIUM
     Indication: GASTROOESOPHAGEAL REFLUX DISEASE
  9. CALCIUM [Concomitant]
     Active Substance: CALCIUM
     Indication: OSTEOPENIA
  10. AMBIEN [Concomitant]
     Active Substance: ZOLPIDEM TARTRATE
     Indication: SLEEP DISORDER THERAPY

REACTIONS (19)
  - Eye swelling [Recovered/Resolved]
  - Eye discharge [Recovered/Resolved]
  - Peripheral swelling [Recovered/Resolved]
  - Hypersensitivity [Unknown]
  - Eyelid oedema [Recovered/Resolved]
  - Eye pain [Recovered/Resolved]
  - White blood cell count increased [Recovered/Resolved]
  - Fall [Recovered/Resolved]
  - Myalgia [Not Recovered/Not Resolved]
  - Drug effect incomplete [Unknown]
  - Surgery [Unknown]
  - Tendon calcification [Not Recovered/Not Resolved]
  - Arthralgia [Not Recovered/Not Resolved]
  - Scratch [Recovered/Resolved]
  - Staphylococcal infection [Recovered/Resolved]
  - Phlebitis [Recovered/Resolved]
  - Ocular hyperaemia [Recovered/Resolved]
  - Eye inflammation [Recovered/Resolved]
  - Exostosis [Not Recovered/Not Resolved]

NARRATIVE: CASE EVENT DATE: 201608
